FAERS Safety Report 12492982 (Version 3)
Quarter: 2016Q3

REPORT INFORMATION
  Report Type: Spontaneous
  Country: JP (occurrence: JP)
  Receive Date: 20160623
  Receipt Date: 20160802
  Transmission Date: 20161109
  Serious: Yes (Other)
  Sender: FDA-Public Use
  Company Number: JP-GILEAD-2016-0216224

PATIENT
  Age: 59 Year
  Sex: Female
  Weight: 49 kg

DRUGS (10)
  1. MERCAZOLE [Suspect]
     Active Substance: CARBIMAZOLE
     Dosage: 5 MG, 5 DAYS A WEEK
     Route: 048
     Dates: start: 20140109, end: 20140312
  2. MERCAZOLE [Suspect]
     Active Substance: CARBIMAZOLE
     Dosage: 5MG, 6 DAYS A WEEK
     Route: 048
     Dates: start: 20140313, end: 20150218
  3. MERCAZOLE [Suspect]
     Active Substance: CARBIMAZOLE
     Dosage: 5 MG, QD
     Route: 048
     Dates: start: 20131119, end: 20140108
  4. HARVONI [Suspect]
     Active Substance: LEDIPASVIR\SOFOSBUVIR
     Indication: HEPATITIS C
     Dosage: 1 DF, QD
     Route: 048
     Dates: start: 20160126, end: 20160418
  5. MERCAZOLE [Suspect]
     Active Substance: CARBIMAZOLE
     Indication: BASEDOW^S DISEASE
     Dosage: 15 MG, QD
     Route: 048
     Dates: start: 20121218, end: 20130223
  6. MERCAZOLE [Suspect]
     Active Substance: CARBIMAZOLE
     Dosage: 10 MG, QD
     Route: 048
     Dates: start: 20130222, end: 20131007
  7. MERCAZOLE [Suspect]
     Active Substance: CARBIMAZOLE
     Dosage: 5MG, 3 DAYS A WEEK
     Route: 048
     Dates: start: 20160511, end: 20160531
  8. MERCAZOLE [Suspect]
     Active Substance: CARBIMAZOLE
     Dosage: 10 MG, 5 DAYS A WEEK, 5 MG, 2 DAYS A WEEK
     Route: 048
     Dates: start: 20131008, end: 20131118
  9. MERCAZOLE [Suspect]
     Active Substance: CARBIMAZOLE
     Dosage: 5MG, 4 DAYS A WEEK
     Route: 048
     Dates: start: 20150219, end: 20160120
  10. MERCAZOLE [Suspect]
     Active Substance: CARBIMAZOLE
     Dosage: 5 MG, QOD
     Route: 048
     Dates: start: 20160121, end: 20160510

REACTIONS (1)
  - Thyroiditis [Recovering/Resolving]

NARRATIVE: CASE EVENT DATE: 20160405
